FAERS Safety Report 16361791 (Version 1)
Quarter: 2019Q2

REPORT INFORMATION
  Report Type: Spontaneous
  Country: DE (occurrence: DE)
  Receive Date: 20190528
  Receipt Date: 20190528
  Transmission Date: 20190711
  Serious: Yes (Hospitalization)
  Sender: FDA-Public Use
  Company Number: DE-PFIZER INC-2019217529

PATIENT
  Age: 53 Year
  Sex: Male

DRUGS (10)
  1. DELIX [RAMIPRIL] [Concomitant]
     Dosage: 10 MG, 1X/DAY
     Dates: start: 20090521, end: 20090525
  2. SOLVEX (REBOXETINE) [Interacting]
     Active Substance: REBOXETINE MESYLATE
     Dosage: 2 MG, 1X/DAY
     Dates: start: 20090521, end: 20090521
  3. BELOC ZOK [Concomitant]
     Active Substance: METOPROLOL SUCCINATE
     Dosage: 95 MG, 1X/DAY
     Dates: start: 20090521, end: 20090610
  4. ASPIRIN. [Concomitant]
     Active Substance: ASPIRIN
     Dosage: 200 MG, 1X/DAY
     Dates: start: 20090521, end: 20090610
  5. ZYLORIC [Concomitant]
     Active Substance: ALLOPURINOL
     Dosage: 150 MG, 1X/DAY
     Dates: start: 20090521, end: 20090610
  6. DELIX [RAMIPRIL] [Concomitant]
     Dosage: 5 MG, 1X/DAY
     Dates: start: 20090526, end: 20090610
  7. REMERGIL [Concomitant]
     Active Substance: MIRTAZAPINE
     Dosage: 30 MG, 1X/DAY
     Dates: start: 20090521, end: 20090610
  8. SORTIS [Suspect]
     Active Substance: ATORVASTATIN
     Dosage: 20 MG, 1X/DAY
     Dates: start: 20090521, end: 20090610
  9. SOLVEX (REBOXETINE) [Interacting]
     Active Substance: REBOXETINE MESYLATE
     Dosage: 4 MG, 1X/DAY
     Dates: start: 20090522, end: 20090607
  10. ZOPICLON [Concomitant]
     Active Substance: ZOPICLONE
     Dosage: 7.5 MG, 1X/DAY
     Dates: start: 20090521, end: 20090610

REACTIONS (4)
  - Sexual dysfunction [Recovered/Resolved]
  - Loss of libido [Recovered/Resolved]
  - Urinary retention [Recovered/Resolved]
  - Drug interaction [Unknown]

NARRATIVE: CASE EVENT DATE: 20090602
